FAERS Safety Report 9717195 (Version 3)
Quarter: 2013Q4

REPORT INFORMATION
  Report Type: Spontaneous
  Country: US (occurrence: US)
  Receive Date: 20131127
  Receipt Date: 20131220
  Transmission Date: 20140711
  Serious: Yes (Other)
  Sender: FDA-Public Use
  Company Number: US-JNJFOC-20131111526

PATIENT
  Age: 24 Year
  Sex: Male

DRUGS (7)
  1. INFLIXIMAB, RECOMBINANT [Suspect]
     Indication: CROHN^S DISEASE
     Route: 042
  2. STEROIDS NOS [Suspect]
     Indication: CROHN^S DISEASE
     Route: 065
  3. AZATHIOPRINE [Suspect]
     Indication: CROHN^S DISEASE
     Route: 065
  4. METHOTREXATE [Suspect]
     Indication: CROHN^S DISEASE
     Route: 065
  5. ADALIMUMAB [Suspect]
     Indication: CROHN^S DISEASE
     Route: 065
  6. CERTOLIZUMAB [Suspect]
     Indication: CROHN^S DISEASE
     Route: 065
  7. NATALIZUMAB [Suspect]
     Indication: CROHN^S DISEASE
     Route: 065

REACTIONS (2)
  - Hepatocellular carcinoma [Unknown]
  - Drug ineffective [Unknown]
